FAERS Safety Report 18600090 (Version 1)
Quarter: 2020Q4

REPORT INFORMATION
  Report Type: Spontaneous
  Country: US (occurrence: US)
  Receive Date: 20201210
  Receipt Date: 20201210
  Transmission Date: 20210114
  Serious: No
  Sender: FDA-Public Use
  Company Number: NVSC2020US328057

PATIENT

DRUGS (1)
  1. LETROZOLE. [Suspect]
     Active Substance: LETROZOLE
     Indication: BREAST CANCER
     Dosage: 100 MG
     Route: 048

REACTIONS (3)
  - Weight decreased [Unknown]
  - Gingival disorder [Unknown]
  - Bone disorder [Unknown]
